FAERS Safety Report 24743474 (Version 1)
Quarter: 2024Q4

REPORT INFORMATION
  Report Type: Report from Study
  Country: RO (occurrence: RO)
  Receive Date: 20241217
  Receipt Date: 20241217
  Transmission Date: 20250114
  Serious: Yes (Hospitalization, Other)
  Sender: BIOVITRUM
  Company Number: RO-AstraZeneca-CH-00767059A

PATIENT
  Sex: Male

DRUGS (1)
  1. PALIVIZUMAB [Suspect]
     Active Substance: PALIVIZUMAB
     Indication: Premature baby
     Dosage: UNK MOLE, QMONTH
     Route: 030
     Dates: start: 20241021, end: 20241021

REACTIONS (1)
  - Bronchiolitis [Recovering/Resolving]

NARRATIVE: CASE EVENT DATE: 20241101
